FAERS Safety Report 9465914 (Version 1)
Quarter: 2013Q3

REPORT INFORMATION
  Report Type: Spontaneous
  Country: FR (occurrence: FR)
  Receive Date: 20130820
  Receipt Date: 20130820
  Transmission Date: 20140515
  Serious: Yes (Other)
  Sender: FDA-Public Use
  Company Number: FR-ELI_LILLY_AND_COMPANY-FR201308003966

PATIENT
  Age: 60 Year
  Sex: Male

DRUGS (6)
  1. GEMZAR [Suspect]
     Indication: ADENOCARCINOMA PANCREAS
     Dosage: UNK
     Route: 042
  2. GEMZAR [Suspect]
     Dosage: UNK
     Route: 042
     Dates: start: 20130514, end: 20130618
  3. LANTUS [Concomitant]
     Dosage: 1 DF, QD
  4. NOVORAPID [Concomitant]
     Dosage: 3 DF, QD
  5. CREON [Concomitant]
     Dosage: UNK
  6. LEXOMIL [Concomitant]
     Dosage: .4 DF, QD
     Route: 048

REACTIONS (3)
  - Fluid retention [Recovered/Resolved]
  - Generalised oedema [Recovered/Resolved]
  - Weight increased [Recovered/Resolved]
